FAERS Safety Report 19458549 (Version 1)
Quarter: 2021Q2

REPORT INFORMATION
  Report Type: Spontaneous
  Country: US (occurrence: US)
  Receive Date: 20210610
  Receipt Date: 20210610
  Transmission Date: 20210717
  Serious: Yes (Life-Threatening)
  Sender: FDA-Public Use
  Company Number: None

PATIENT
  Age: 69 Year
  Sex: Female

DRUGS (1)
  1. LUMASON [Suspect]
     Active Substance: SULFUR HEXAFLUORIDE
     Indication: ECHOCARDIOGRAM
     Route: 042
     Dates: start: 20210609, end: 20210609

REACTIONS (3)
  - Dyspnoea [None]
  - Unresponsive to stimuli [None]
  - Nausea [None]

NARRATIVE: CASE EVENT DATE: 20210609
